FAERS Safety Report 19590976 (Version 2)
Quarter: 2021Q3

REPORT INFORMATION
  Report Type: Spontaneous
  Country: JP (occurrence: JP)
  Receive Date: 20210721
  Receipt Date: 20210809
  Transmission Date: 20211014
  Serious: Yes (Hospitalization)
  Sender: FDA-Public Use
  Company Number: JP-JNJFOC-20210737995

PATIENT
  Age: 44 Year
  Sex: Male

DRUGS (3)
  1. XEPLION [Suspect]
     Active Substance: PALIPERIDONE PALMITATE
  2. XEPLION [Suspect]
     Active Substance: PALIPERIDONE PALMITATE
     Indication: SCHIZOPHRENIA
     Dosage: PALIPERIDONE PALMITATE:25MG
     Route: 030
     Dates: start: 20190328, end: 20200605
  3. XEPLION [Suspect]
     Active Substance: PALIPERIDONE PALMITATE

REACTIONS (3)
  - Schizophrenia [Recovered/Resolved]
  - Refusal of treatment by patient [Recovered/Resolved]
  - Administration site swelling [Recovered/Resolved]

NARRATIVE: CASE EVENT DATE: 20200605
